FAERS Safety Report 18239170 (Version 1)
Quarter: 2020Q3

REPORT INFORMATION
  Report Type: Spontaneous
  Country: US (occurrence: US)
  Receive Date: 20200907
  Receipt Date: 20200907
  Transmission Date: 20201103
  Serious: No
  Sender: FDA-Public Use
  Company Number: US-TEVA-2020-US-1824038

PATIENT
  Age: 25 Year
  Sex: Male

DRUGS (1)
  1. QVAR REDIHALER [Suspect]
     Active Substance: BECLOMETHASONE DIPROPIONATE
     Indication: ASTHMA
     Dosage: DOSE FREQUENCY: TWO PUFFS TWICE DAILY
     Route: 055

REACTIONS (1)
  - Alcohol test false positive [Not Recovered/Not Resolved]

NARRATIVE: CASE EVENT DATE: 202008
